FAERS Safety Report 20737071 (Version 2)
Quarter: 2022Q2

REPORT INFORMATION
  Report Type: Report from Study
  Country: BE (occurrence: BE)
  Receive Date: 20220421
  Receipt Date: 20220505
  Transmission Date: 20220721
  Serious: Yes (Hospitalization)
  Sender: FDA-Public Use
  Company Number: BE-FEDR-MF-002-2011003-20220225-0006SG

PATIENT
  Age: 71 Year
  Sex: Male
  Weight: 73 kg

DRUGS (14)
  1. HYDROXYUREA [Suspect]
     Active Substance: HYDROXYUREA
     Indication: Primary myelofibrosis
     Dates: start: 20200930, end: 20210301
  2. ACYCLOVIR [Concomitant]
     Active Substance: ACYCLOVIR
     Indication: Ophthalmic herpes zoster
     Route: 048
     Dates: start: 20220131, end: 20220207
  3. FEBUXOSTAT [Concomitant]
     Active Substance: FEBUXOSTAT
     Indication: Hyperuricaemia
     Route: 048
     Dates: start: 20210707
  4. ASPIRIN [Concomitant]
     Active Substance: ASPIRIN
     Indication: Thrombosis prophylaxis
     Route: 048
     Dates: start: 20200124
  5. FOLIC ACID [Concomitant]
     Active Substance: FOLIC ACID
     Indication: Supportive care
     Route: 048
     Dates: start: 20210621
  6. MAGNESIUM [Concomitant]
     Active Substance: MAGNESIUM
     Indication: Muscle spasms
     Route: 048
     Dates: start: 20210428
  7. MAGNESIUM OXIDE [Concomitant]
     Active Substance: MAGNESIUM OXIDE
     Indication: Muscle spasms
     Route: 048
     Dates: start: 20210428
  8. SPIRONOLACTONE [Concomitant]
     Active Substance: SPIRONOLACTONE
     Indication: Cardiomegaly
     Route: 048
     Dates: start: 20211125
  9. PERINDOPRIL [Concomitant]
     Active Substance: PERINDOPRIL
     Indication: Hypertension
     Route: 048
     Dates: start: 202010
  10. IBUPROFEN [Concomitant]
     Active Substance: IBUPROFEN
     Indication: Headache
     Dosage: FREQUENCY : PRN
     Route: 048
     Dates: start: 202010
  11. BEFACT FORTE [Concomitant]
     Indication: Vitamin B1 decreased
     Dosage: 2/250/10/250 MG
     Route: 048
     Dates: start: 20210428
  12. DARBEPOETIN ALFA [Concomitant]
     Active Substance: DARBEPOETIN ALFA
     Indication: Anaemia
     Route: 058
     Dates: start: 20210901
  13. PANTOMED [Concomitant]
     Indication: Prophylaxis
     Route: 048
     Dates: start: 20210622
  14. PREDNISOLONE [Concomitant]
     Active Substance: PREDNISOLONE
     Indication: Primary myelofibrosis
     Dosage: 5 MG X 1 X 1 DAYS
     Dates: start: 20201029

REACTIONS (1)
  - Sinusitis [Recovered/Resolved]

NARRATIVE: CASE EVENT DATE: 20220217
